FAERS Safety Report 6168536-3 (Version None)
Quarter: 2009Q2

REPORT INFORMATION
  Report Type: 
  Country: None (occurrence: None)
  Receive Date: 20090427
  Receipt Date: 20090423
  Transmission Date: 20091009
  Serious: Yes (Other)
  Sender: FDA-Public Use
  Company Number: B0571307A

PATIENT
  Age: 68 Year
  Sex: Female

DRUGS (6)
  1. RELENZA [Suspect]
     Indication: INFLUENZA
     Route: 055
     Dates: start: 20090415
  2. CONIEL [Concomitant]
     Route: 048
  3. ALTAT [Concomitant]
     Route: 065
  4. LIPITOR [Concomitant]
     Route: 048
  5. HUSCODE [Concomitant]
     Route: 048
  6. VOLTAREN [Concomitant]
     Route: 054
     Dates: start: 20090414

REACTIONS (1)
  - LOSS OF CONSCIOUSNESS [None]
